FAERS Safety Report 19739545 (Version 6)
Quarter: 2024Q2

REPORT INFORMATION
  Report Type: Report from Study
  Country: US (occurrence: US)
  Receive Date: 20210823
  Receipt Date: 20240430
  Transmission Date: 20240715
  Serious: Yes (Hospitalization)
  Sender: FDA-Public Use
  Company Number: US-BOEHRINGERINGELHEIM-2020-BI-007793

PATIENT
  Age: 65 Year
  Sex: Male

DRUGS (3)
  1. OFEV [Suspect]
     Active Substance: NINTEDANIB
     Indication: Idiopathic pulmonary fibrosis
     Route: 048
     Dates: start: 20200127
  2. OFEV [Suspect]
     Active Substance: NINTEDANIB
     Route: 048
  3. WARFARIN [Concomitant]
     Active Substance: WARFARIN
     Indication: Product used for unknown indication

REACTIONS (14)
  - COVID-19 [Unknown]
  - Chest pain [Recovering/Resolving]
  - Haemoptysis [Unknown]
  - Pneumonia [Unknown]
  - Hypertension [Unknown]
  - Dry throat [Unknown]
  - Seasonal allergy [Unknown]
  - Eye infection [Unknown]
  - Sinusitis [Unknown]
  - Fatigue [Unknown]
  - Hypotension [Unknown]
  - Vomiting [Unknown]
  - Diarrhoea [Unknown]
  - Scab [Unknown]

NARRATIVE: CASE EVENT DATE: 20200301
